FAERS Safety Report 7231904-2 (Version None)
Quarter: 2011Q1

REPORT INFORMATION
  Report Type: 
  Country: None (occurrence: None)
  Receive Date: 20110118
  Receipt Date: 20110111
  Transmission Date: 20110831
  Serious: Yes (Other)
  Sender: FDA-Public Use
  Company Number: PHEH2010US03844

PATIENT
  Sex: Male

DRUGS (1)
  1. ZOMETA [Suspect]
     Route: 065

REACTIONS (7)
  - OSTEONECROSIS OF JAW [None]
  - PAIN [None]
  - INJURY [None]
  - INFECTION [None]
  - STRESS [None]
  - DEFORMITY [None]
  - PHYSICAL DISABILITY [None]
